FAERS Safety Report 22788206 (Version 6)
Quarter: 2024Q1

REPORT INFORMATION
  Report Type: Report from Study
  Country: US (occurrence: US)
  Receive Date: 20230804
  Receipt Date: 20240319
  Transmission Date: 20240409
  Serious: Yes (Hospitalization, Other)
  Sender: FDA-Public Use
  Company Number: US-ARGENX-2022-ARGX-US002699

PATIENT

DRUGS (2)
  1. VYVGART [Suspect]
     Active Substance: EFGARTIGIMOD ALFA-FCAB
     Indication: Myasthenia gravis
     Dosage: UNK
     Route: 042
     Dates: start: 20230617, end: 20231219
  2. VYVGART [Suspect]
     Active Substance: EFGARTIGIMOD ALFA-FCAB
     Dosage: UNK
     Route: 042
     Dates: start: 20220617

REACTIONS (9)
  - Myasthenia gravis crisis [Recovering/Resolving]
  - Diabetes mellitus [Unknown]
  - Myasthenia gravis [Recovering/Resolving]
  - Cystitis [Unknown]
  - Tongue disorder [Unknown]
  - Inappropriate schedule of product administration [Unknown]
  - Pollakiuria [Recovering/Resolving]
  - Dehydration [Recovering/Resolving]
  - Product dose omission issue [Unknown]

NARRATIVE: CASE EVENT DATE: 20221204
